FAERS Safety Report 7030573-4 (Version None)
Quarter: 2010Q4

REPORT INFORMATION
  Report Type: 
  Country: None (occurrence: None)
  Receive Date: 20101006
  Receipt Date: 20100928
  Transmission Date: 20110411
  Serious: Yes (Death, Life-Threatening, Hospitalization, Other)
  Sender: FDA-Public Use
  Company Number: US-ROCHE-726082

PATIENT
  Sex: Female
  Weight: 55.8 kg

DRUGS (8)
  1. BEVACIZUMAB [Suspect]
     Dosage: LAST DOSE PRIOR TO SAE: 17 AUGUST 2010. COURSE NUMBER: 3
     Route: 042
     Dates: start: 20100706
  2. ALIMTA [Suspect]
     Dosage: LAST DOSE PRIOR TO SAE: 17 AUGUST 2010. COURSE NUMBER: 3
     Route: 042
     Dates: start: 20100706
  3. FOLIC ACID [Concomitant]
     Dosage: FREQUENCY: EVERY DAY
     Route: 048
     Dates: start: 20100625
  4. COZAAR [Concomitant]
     Indication: HYPERTENSION
     Dosage: FREQUENCY: EVERY DAY
     Dates: start: 20020101
  5. MEGACE [Concomitant]
     Dates: start: 20100727
  6. ZIAC [Concomitant]
     Indication: HYPERTENSION
     Dosage: FREUQENCY: EVERY DAY
     Dates: start: 20020101
  7. SULAR [Concomitant]
     Indication: HYPERTENSION
     Dosage: FREQUENCY: EVERY DAY.
     Dates: start: 20020101
  8. ATIVAN [Concomitant]
     Indication: ANXIETY
     Dosage: PRN
     Dates: start: 20100630

REACTIONS (5)
  - ACUTE RESPIRATORY FAILURE [None]
  - ASTHENIA [None]
  - DYSPNOEA [None]
  - PLEURAL EFFUSION [None]
  - PNEUMONIA [None]
